FAERS Safety Report 6715662-3 (Version None)
Quarter: 2010Q2

REPORT INFORMATION
  Report Type: 
  Country: None (occurrence: None)
  Receive Date: 20100507
  Receipt Date: 20090730
  Transmission Date: 20101027
  Serious: No
  Sender: FDA-Public Use
  Company Number: A0800978A

PATIENT
  Sex: Female

DRUGS (3)
  1. DYNACIRC [Suspect]
     Indication: DRUG USE FOR UNKNOWN INDICATION
     Route: 065
  2. CAPOZIDE 25/15 [Suspect]
     Indication: DRUG USE FOR UNKNOWN INDICATION
     Route: 065
  3. UNKNOWN MEDICATION [Suspect]
     Indication: DRUG USE FOR UNKNOWN INDICATION
     Route: 065

REACTIONS (4)
  - COUGH [None]
  - DIZZINESS [None]
  - OEDEMA MOUTH [None]
  - TINNITUS [None]
